FAERS Safety Report 19205700 (Version 3)
Quarter: 2022Q3

REPORT INFORMATION
  Report Type: Spontaneous
  Country: US (occurrence: None)
  Receive Date: 20210503
  Receipt Date: 20220907
  Transmission Date: 20221027
  Serious: No
  Sender: FDA-Public Use
  Company Number: US-FARMAPROD-202102-0239

PATIENT
  Sex: Male

DRUGS (26)
  1. OXERVATE [Suspect]
     Active Substance: CENEGERMIN-BKBJ
     Indication: Neurotrophic keratopathy
     Route: 047
     Dates: start: 20201203, end: 20210127
  2. OXERVATE [Suspect]
     Active Substance: CENEGERMIN-BKBJ
     Route: 047
     Dates: start: 20210209
  3. SYSTANE (HYPROMELLOSE 2910 (4000 MPA.S)) [Concomitant]
     Active Substance: HYPROMELLOSE 2910 (4000 MPA.S)
     Dosage: 0.3%-0.4%
  4. DUREZOL [Concomitant]
     Active Substance: DIFLUPREDNATE
  5. LATANOPROST [Concomitant]
     Active Substance: LATANOPROST
  6. BRIMONIDINE TARTRATE [Concomitant]
     Active Substance: BRIMONIDINE TARTRATE
  7. CALCIUM [Concomitant]
     Active Substance: CALCIUM
     Dosage: 250-12.5 MG
  8. ASCORBIC ACID [Concomitant]
     Active Substance: ASCORBIC ACID
  9. GARLIC [Concomitant]
     Active Substance: GARLIC
  10. VITAMIN B COMPLEX [Concomitant]
     Active Substance: CYANOCOBALAMIN\DEXPANTHENOL\NIACINAMIDE\PYRIDOXINE HYDROCHLORIDE\RIBOFLAVIN 5^-PHOSPHATE SODIUM\THIA
  11. ECOTRIN [Concomitant]
     Active Substance: ASPIRIN
  12. VITAMINS [Concomitant]
     Active Substance: VITAMINS
  13. FISH OIL [Concomitant]
     Active Substance: FISH OIL
     Dosage: 100-150 MG
  14. DILANTIN [Concomitant]
     Active Substance: PHENYTOIN
  15. DIVALPROEX SODIUM [Concomitant]
     Active Substance: DIVALPROEX SODIUM
  16. ESCITALOPRAM OXALATE [Concomitant]
     Active Substance: ESCITALOPRAM OXALATE
  17. DOXYCYCLINE HYCLATE [Concomitant]
     Active Substance: DOXYCYCLINE HYCLATE
  18. ELIQUIS [Concomitant]
     Active Substance: APIXABAN
  19. ATORVASTATIN CALCIUM [Concomitant]
     Active Substance: ATORVASTATIN CALCIUM
  20. PHENOBARBITAL [Concomitant]
     Active Substance: PHENOBARBITAL
  21. PANTOPRAZOLE SODIUM [Concomitant]
     Active Substance: PANTOPRAZOLE SODIUM
  22. SUCRALFATE [Concomitant]
     Active Substance: SUCRALFATE
  23. LEVOBUNOLOL HYDROCHLORIDE [Concomitant]
     Active Substance: LEVOBUNOLOL HYDROCHLORIDE
  24. BUDESONIDE [Concomitant]
     Active Substance: BUDESONIDE
     Dosage: 0.25 MG/2 ML AMPUL/NEBULIZATOR
  25. ZYRTEC [Concomitant]
     Active Substance: CETIRIZINE HYDROCHLORIDE
  26. ZIOPTAN [Concomitant]
     Active Substance: TAFLUPROST

REACTIONS (6)
  - Off label use [Unknown]
  - Eye pain [Recovering/Resolving]
  - Ocular hyperaemia [Unknown]
  - Eyelid pain [Unknown]
  - Dry eye [Unknown]
  - Eye inflammation [Unknown]
